FAERS Safety Report 8058468-8 (Version None)
Quarter: 2012Q1

REPORT INFORMATION
  Report Type: 
  Country: None (occurrence: None)
  Receive Date: 20120120
  Receipt Date: 20120116
  Transmission Date: 20120608
  Serious: Yes (Other)
  Sender: FDA-Public Use
  Company Number: US-PFIZER INC-2012012990

PATIENT
  Sex: Female

DRUGS (4)
  1. CELEBREX [Suspect]
     Dosage: UNK
  2. LYRICA [Suspect]
     Dosage: UNK
  3. PROTONIX [Suspect]
     Dosage: UNK
  4. PROCARDIA [Suspect]
     Dosage: UNK

REACTIONS (2)
  - RHEUMATOID ARTHRITIS [None]
  - FIBROMYALGIA [None]
